FAERS Safety Report 7889309-7 (Version None)
Quarter: 2011Q4

REPORT INFORMATION
  Report Type: 
  Country: None (occurrence: None)
  Receive Date: 20111103
  Receipt Date: 20111024
  Transmission Date: 20120403
  Serious: Yes (Hospitalization, Other)
  Sender: FDA-Public Use
  Company Number: US-BAYER-2011-083267

PATIENT
  Age: 40 Year
  Sex: Female
  Weight: 95.238 kg

DRUGS (8)
  1. ADVAIR DISKUS 100/50 [Concomitant]
     Dosage: UNK
     Dates: start: 20090507
  2. HYDROCODONE BITARTRATE AND ACETAMINOPHEN [Concomitant]
     Indication: PAIN
     Dosage: UNK
     Dates: start: 20090902
  3. YASMIN [Suspect]
     Indication: MENSTRUAL CYCLE MANAGEMENT
     Dosage: UNK
     Dates: start: 20020601, end: 20040901
  4. DILTIAZEM HCL [Concomitant]
     Indication: BLOOD PRESSURE ABNORMAL
     Dosage: UNK
     Dates: start: 20031001
  5. TRIAMTERENE AND HYDROCHLOROTHIAZIDE [Concomitant]
     Indication: POLYURIA
     Dosage: UNK
     Dates: start: 20031001
  6. ONDANSETRON [Concomitant]
     Indication: NAUSEA
     Dosage: 4 MG, UNK
     Dates: start: 20090902
  7. FAMOTIDINE [Concomitant]
     Indication: GASTROOESOPHAGEAL REFLUX DISEASE
     Dosage: UNK
     Dates: start: 20090701, end: 20100301
  8. ALBUTEROL [Concomitant]
     Dosage: UNK
     Dates: start: 20090507

REACTIONS (9)
  - HAEMATOMA [None]
  - CHOLANGITIS [None]
  - INJURY [None]
  - GALLBLADDER DISORDER [None]
  - CHOLECYSTITIS CHRONIC [None]
  - PAIN [None]
  - BILIARY ANASTOMOSIS COMPLICATION [None]
  - MYOCARDIAL INFARCTION [None]
  - BILE DUCT STONE [None]
